FAERS Safety Report 6990687-1 (Version None)
Quarter: 2010Q3

REPORT INFORMATION
  Report Type: 
  Country: None (occurrence: None)
  Receive Date: 20100916
  Receipt Date: 20100803
  Transmission Date: 20110219
  Serious: Yes (Other)
  Sender: FDA-Public Use
  Company Number: US-PFIZER INC-2007097738

PATIENT
  Sex: Male
  Weight: 63.492 kg

DRUGS (4)
  1. LYRICA [Suspect]
     Indication: NEURALGIA
     Dosage: 300 MG, 2X/DAY
     Dates: start: 20060101, end: 20090101
  2. LYRICA [Suspect]
     Indication: HERPES ZOSTER OTICUS
  3. LYRICA [Suspect]
     Indication: FACIAL NEURALGIA
  4. NEURONTIN [Suspect]
     Indication: NEURALGIA
     Dosage: 400 MG, 4X/DAY
     Route: 048
     Dates: start: 19950101

REACTIONS (6)
  - AMNESIA [None]
  - DRUG INEFFECTIVE [None]
  - DRY MOUTH [None]
  - PROSTATIC SPECIFIC ANTIGEN INCREASED [None]
  - SKIN CANCER [None]
  - VISION BLURRED [None]
